FAERS Safety Report 10557448 (Version 2)
Quarter: 2014Q4

REPORT INFORMATION
  Report Type: Spontaneous
  Country: JP (occurrence: JP)
  Receive Date: 20141031
  Receipt Date: 20141031
  Transmission Date: 20150529
  Serious: Yes (Life-Threatening, Hospitalization, Other)
  Sender: FDA-Public Use
  Company Number: JP-JPN-A200701468

PATIENT
  Age: 91 Year
  Sex: Male

DRUGS (3)
  1. LOXONIN [Concomitant]
     Active Substance: LOXOPROFEN SODIUM
     Route: 048
  2. VALACICLOVIR HYDROCHLORIDE [Suspect]
     Active Substance: VALACYCLOVIR HYDROCHLORIDE
     Indication: HERPES ZOSTER
     Route: 048
     Dates: start: 20070227, end: 20070227
  3. SELBEX [Concomitant]
     Active Substance: TEPRENONE
     Route: 048

REACTIONS (4)
  - Altered state of consciousness [Recovering/Resolving]
  - Gastrointestinal haemorrhage [Unknown]
  - Encephalopathy [Recovering/Resolving]
  - Delirium [Unknown]

NARRATIVE: CASE EVENT DATE: 20070228
